FAERS Safety Report 4411969-3 (Version None)
Quarter: 2004Q3

REPORT INFORMATION
  Report Type: 
  Country: None (occurrence: None)
  Receive Date: 20040729
  Receipt Date: 20040729
  Transmission Date: 20050211
  Serious: Yes (Death)
  Sender: FDA-Public Use
  Company Number: None

PATIENT
  Age: 54 Year
  Sex: Female
  Weight: 56.6996 kg

DRUGS (8)
  1. DOFETILIDE 250  MG PO QD [Suspect]
     Indication: ATRIAL FIBRILLATION
     Dates: start: 20040623, end: 20040709
  2. PREDNISONE TAB [Concomitant]
  3. KCL TAB [Concomitant]
  4. WARFARIN SODIUM [Concomitant]
  5. FUROSEMIDE [Concomitant]
  6. DIGOXIN [Concomitant]
  7. L-THYROXINE [Concomitant]
  8. LISINOPRIL [Concomitant]

REACTIONS (1)
  - SUDDEN DEATH [None]
